FAERS Safety Report 4531187-8 (Version None)
Quarter: 2004Q4

REPORT INFORMATION
  Report Type: 
  Country: None (occurrence: None)
  Receive Date: 20041130
  Receipt Date: 20040316
  Transmission Date: 20050328
  Serious: Yes (Hospitalization, Disabling)
  Sender: FDA-Public Use
  Company Number: WAES 0403USA01473

PATIENT
  Age: 70 Year
  Sex: Female

DRUGS (2)
  1. FOSAMAX [Suspect]
     Dosage: 70 MG/WKY/PO
     Route: 048
  2. DILTIAZEM HYDROCHLORIDE UNK [Suspect]

REACTIONS (2)
  - ADVERSE EVENT [None]
  - DYSGEUSIA [None]
